FAERS Safety Report 14412051 (Version 1)
Quarter: 2018Q1

REPORT INFORMATION
  Report Type: Spontaneous
  Country: US (occurrence: US)
  Receive Date: 20180119
  Receipt Date: 20180119
  Transmission Date: 20180509
  Serious: Yes (Death, Hospitalization)
  Sender: FDA-Public Use
  Company Number: US-PFIZER INC-2017534040

PATIENT
  Age: 68 Year
  Sex: Female
  Weight: 57 kg

DRUGS (1)
  1. DOXYCYCLINE HYCLATE. [Suspect]
     Active Substance: DOXYCYCLINE HYCLATE
     Indication: MASTITIS
     Dosage: UNK UNK, 2X/DAY
     Route: 048
     Dates: start: 20171129, end: 20171201

REACTIONS (3)
  - Death [Fatal]
  - Intentional product misuse [Unknown]
  - Sepsis [Unknown]

NARRATIVE: CASE EVENT DATE: 20171208
